FAERS Safety Report 5241682-4 (Version None)
Quarter: 2007Q1

REPORT INFORMATION
  Report Type: 
  Country: None (occurrence: None)
  Receive Date: 20070220
  Receipt Date: 20070207
  Transmission Date: 20070707
  Serious: Yes (Other)
  Sender: FDA-Public Use
  Company Number: US-ELI_LILLY_AND_COMPANY-US200702001506

PATIENT
  Age: 72 Year
  Sex: Female

DRUGS (3)
  1. FORTEO [Suspect]
     Indication: OSTEOPOROSIS
     Dosage: UNK D/F, UNK
  2. FORTEO [Suspect]
     Dates: start: 20060729
  3. FORTEO [Suspect]
     Dosage: UNK D/F, UNK
     Dates: start: 20061029

REACTIONS (2)
  - BASAL CELL CARCINOMA [None]
  - SKIN DISORDER [None]
